FAERS Safety Report 15302336 (Version 1)
Quarter: 2018Q3

REPORT INFORMATION
  Report Type: Spontaneous
  Country: ES (occurrence: ES)
  Receive Date: 20180821
  Receipt Date: 20180821
  Transmission Date: 20181010
  Serious: Yes (Hospitalization)
  Sender: FDA-Public Use
  Company Number: PHHY2018ES078379

PATIENT
  Age: 80 Year
  Sex: Male

DRUGS (1)
  1. PROMETAX [Suspect]
     Active Substance: RIVASTIGMINE
     Indication: COGNITIVE DISORDER
     Dosage: 1 DF, QD
     Route: 062

REACTIONS (3)
  - Rash generalised [Recovered/Resolved]
  - Angioedema [Recovered/Resolved]
  - Palatal oedema [Recovered/Resolved]

NARRATIVE: CASE EVENT DATE: 20170908
